FAERS Safety Report 11983339 (Version 1)
Quarter: 2016Q1

REPORT INFORMATION
  Report Type: Spontaneous
  Country: IN (occurrence: IN)
  Receive Date: 20160201
  Receipt Date: 20160201
  Transmission Date: 20160526
  Serious: Yes (Hospitalization)
  Sender: FDA-Public Use
  Company Number: IN-MYLANLABS-2016M1003745

PATIENT

DRUGS (1)
  1. CLONAZEPAM. [Suspect]
     Active Substance: CLONAZEPAM
     Indication: PRODUCT USED FOR UNKNOWN INDICATION
     Dosage: 45 TABLETS EACH TABLET EQUIVALENT TO 0.5 MG
     Route: 048
     Dates: start: 20150913

REACTIONS (7)
  - Intentional overdose [Recovered/Resolved]
  - Suicide attempt [Unknown]
  - Tachycardia [Recovered/Resolved]
  - Somnolence [Recovered/Resolved]
  - Toxicity to various agents [Recovered/Resolved]
  - Disorientation [Recovered/Resolved]
  - Mydriasis [Recovered/Resolved]

NARRATIVE: CASE EVENT DATE: 20150913
